FAERS Safety Report 8359795-7 (Version None)
Quarter: 2012Q2

REPORT INFORMATION
  Report Type: 
  Country: None (occurrence: None)
  Receive Date: 20120515
  Receipt Date: 20120507
  Transmission Date: 20120825
  Serious: Yes (Hospitalization)
  Sender: FDA-Public Use
  Company Number: PHHY2012FR039815

PATIENT
  Sex: Female

DRUGS (7)
  1. MODOPAR [Suspect]
     Indication: PARKINSON'S DISEASE
     Dosage: 50/12.5 MG/DAY
  2. STALEVO 100 [Suspect]
     Indication: PARKINSON'S DISEASE
     Dosage: 1200/700/175 MG/DAY
  3. TROSPIUM CHLORIDE [Suspect]
     Dosage: 20 MG, BID
  4. AMANTADINE HCL [Suspect]
     Indication: PARKINSON'S DISEASE
     Dosage: 10 MG, TID
  5. PARLODEL [Suspect]
     Indication: PARKINSON'S DISEASE
     Dosage: 6 DF, UNK
  6. CLONAZEPAM [Suspect]
     Dosage: 0.3 MG, QD
  7. BICIRKAN [Suspect]
     Dosage: UNK UKN, UNK

REACTIONS (9)
  - PULMONARY EMBOLISM [None]
  - DYSPNOEA EXERTIONAL [None]
  - PULMONARY HYPERTENSION [None]
  - HYPOXIA [None]
  - ATRIAL FIBRILLATION [None]
  - HYPOCAPNIA [None]
  - PULMONARY FIBROSIS [None]
  - ELECTROCARDIOGRAM QRS COMPLEX SHORTENED [None]
  - ELECTROCARDIOGRAM T WAVE INVERSION [None]
